FAERS Safety Report 5020002-4 (Version None)
Quarter: 2006Q2

REPORT INFORMATION
  Report Type: 
  Country: None (occurrence: None)
  Receive Date: 20060607
  Receipt Date: 20060601
  Transmission Date: 20061013
  Serious: Yes (Hospitalization)
  Sender: FDA-Public Use
  Company Number: US-MERCK-0606USA00251

PATIENT
  Age: 69 Year
  Sex: Female

DRUGS (5)
  1. FOSAMAX [Suspect]
     Indication: OSTEOPOROSIS
     Route: 048
     Dates: start: 19910101
  2. FOSAMAX [Suspect]
     Route: 048
  3. KLONOPIN [Concomitant]
     Route: 065
  4. CELEXA [Concomitant]
     Route: 065
  5. MELATONIN [Concomitant]
     Route: 065

REACTIONS (2)
  - BONE DENSITY DECREASED [None]
  - HIP FRACTURE [None]
